FAERS Safety Report 4641999-8 (Version None)
Quarter: 2005Q2

REPORT INFORMATION
  Report Type: 
  Country: None (occurrence: None)
  Receive Date: 20050420
  Receipt Date: 20050401
  Transmission Date: 20051028
  Serious: Yes (Hospitalization, Other)
  Sender: FDA-Public Use
  Company Number: USA050494695

PATIENT
  Age: 73 Year
  Sex: Female
  Weight: 113 kg

DRUGS (14)
  1. FORTEO [Suspect]
     Indication: OSTEOPOROSIS
     Dosage: 20 UG DAY
     Dates: start: 20031001
  2. HUMULIN 70/30 [Suspect]
     Indication: DIABETES MELLITUS
     Dosage: 35 U DAY
     Dates: start: 19990101
  3. AVANDIA [Concomitant]
  4. TOPRAL (SULTOPRIDE) [Concomitant]
  5. PREVACID [Concomitant]
  6. COUMADIN (WARFARIN SODIUM0 [Concomitant]
  7. HYDROCODONE BITARTRATE [Concomitant]
  8. NORVASC [Concomitant]
  9. OMEPRAZOLE [Concomitant]
  10. CALCIUM CARBONATE [Concomitant]
  11. COLACE (DOCUSATE SODIUM) [Concomitant]
  12. VITAMIN C [Concomitant]
  13. ZINC SULFATE [Concomitant]
  14. MULTI-VITAMIN [Concomitant]

REACTIONS (2)
  - FALL [None]
  - HIP FRACTURE [None]
